FAERS Safety Report 7774094-X (Version None)
Quarter: 2011Q3

REPORT INFORMATION
  Report Type: 
  Country: None (occurrence: None)
  Receive Date: 20110923
  Receipt Date: 20110919
  Transmission Date: 20111222
  Serious: Yes (Death, Other)
  Sender: FDA-Public Use
  Company Number: US-PFIZER INC-2011163351

PATIENT
  Sex: Male

DRUGS (13)
  1. SENOKOT [Concomitant]
  2. COLACE [Concomitant]
  3. VICODIN [Concomitant]
  4. BACTRIM [Concomitant]
  5. FOLIC ACID [Concomitant]
  6. MIRALAX [Concomitant]
  7. SPIRONOLACTONE [Concomitant]
  8. OXYGEN [Concomitant]
  9. LASIX [Concomitant]
  10. MORPHINE [Concomitant]
  11. MORPHINE SULFATE [Concomitant]
  12. REVATIO [Suspect]
     Indication: PULMONARY HYPERTENSION
     Dosage: 2 TABLETS 3X/DAY
  13. POTASSIUM CHLORIDE [Concomitant]

REACTIONS (1)
  - RIGHT VENTRICULAR FAILURE [None]
